FAERS Safety Report 9921572 (Version 2)
Quarter: 2014Q1

REPORT INFORMATION
  Report Type: Report from Study
  Country: IN (occurrence: IN)
  Receive Date: 20140225
  Receipt Date: 20140225
  Transmission Date: 20141002
  Serious: Yes (Death)
  Sender: FDA-Public Use
  Company Number: PHHY2013IN045675

PATIENT
  Age: 51 Year
  Sex: Male

DRUGS (2)
  1. GLIVEC [Suspect]
     Indication: CHRONIC MYELOID LEUKAEMIA
     Dosage: 400 MG
     Route: 048
  2. GLIVEC [Suspect]
     Dosage: 600 MG
     Route: 048

REACTIONS (2)
  - Death [Fatal]
  - Pain in extremity [Unknown]
